FAERS Safety Report 15013797 (Version 1)
Quarter: 2018Q2

REPORT INFORMATION
  Report Type: Spontaneous
  Country: US (occurrence: US)
  Receive Date: 20180614
  Receipt Date: 20180614
  Transmission Date: 20180711
  Serious: No
  Sender: FDA-Public Use
  Company Number: US-VIFOR (INTERNATIONAL) INC.-VIT-2018-05880

PATIENT
  Sex: Female

DRUGS (6)
  1. UBIDECARENONE [Concomitant]
     Active Substance: UBIDECARENONE
  2. LEVOTHYROXINE SODIUM. [Concomitant]
     Active Substance: LEVOTHYROXINE SODIUM
  3. VELTASSA [Suspect]
     Active Substance: PATIROMER
     Indication: HYPERKALAEMIA
     Route: 048
  4. FISH OIL [Concomitant]
     Active Substance: FISH OIL
  5. VALSARTAN. [Concomitant]
     Active Substance: VALSARTAN
  6. ATORVASTATIN CALCIUM. [Concomitant]
     Active Substance: ATORVASTATIN CALCIUM

REACTIONS (1)
  - Abdominal discomfort [Unknown]
